FAERS Safety Report 18006862 (Version 2)
Quarter: 2020Q3

REPORT INFORMATION
  Report Type: Spontaneous
  Country: US (occurrence: US)
  Receive Date: 20200710
  Receipt Date: 20200806
  Transmission Date: 20201103
  Serious: No
  Sender: FDA-Public Use
  Company Number: US-SA-2020SA178254

PATIENT

DRUGS (1)
  1. DUPIXENT [Suspect]
     Active Substance: DUPILUMAB
     Indication: ASTHMA
     Dosage: 300 MG, QOD
     Route: 058
     Dates: start: 20200522

REACTIONS (2)
  - Injection site pain [Unknown]
  - Product use issue [Unknown]

NARRATIVE: CASE EVENT DATE: 2020
